FAERS Safety Report 10337998 (Version 2)
Quarter: 2014Q3

REPORT INFORMATION
  Report Type: Spontaneous
  Country: NG (occurrence: NG)
  Receive Date: 20140724
  Receipt Date: 20140728
  Transmission Date: 20150326
  Serious: Yes (Death, Other)
  Sender: FDA-Public Use
  Company Number: PHHY2014NG090075

PATIENT
  Age: 41 Year
  Sex: Male

DRUGS (1)
  1. EXFORGE [Suspect]
     Active Substance: AMLODIPINE BESYLATE\VALSARTAN
     Indication: HYPERTENSION
     Dosage: 1 DF (VALS 160MG, AMLO 10MG)
     Route: 048
     Dates: start: 20140716, end: 20140720

REACTIONS (3)
  - Rash maculo-papular [Fatal]
  - Pulmonary embolism [Unknown]
  - Angioedema [Fatal]

NARRATIVE: CASE EVENT DATE: 20140718
